FAERS Safety Report 7243499-8 (Version None)
Quarter: 2011Q1

REPORT INFORMATION
  Report Type: 
  Country: None (occurrence: None)
  Receive Date: 20110119
  Receipt Date: 20110119
  Transmission Date: 20110831
  Serious: Yes (Life-Threatening)
  Sender: FDA-Public Use
  Company Number: None

PATIENT
  Sex: Female
  Weight: 101.6057 kg

DRUGS (2)
  1. BYETTA [Suspect]
     Indication: DIABETES MELLITUS
     Dosage: 10MCG BID SQ
     Dates: start: 20101116, end: 20101202
  2. BYETTA [Suspect]
     Indication: DIABETES MELLITUS
     Dosage: 5MCG BID SQ
     Dates: start: 20101105, end: 20101115

REACTIONS (1)
  - VENTRICULAR TACHYCARDIA [None]
